FAERS Safety Report 5458126-X (Version None)
Quarter: 2007Q3

REPORT INFORMATION
  Report Type: 
  Country: None (occurrence: None)
  Receive Date: 20070917
  Receipt Date: 20070830
  Transmission Date: 20080115
  Serious: Yes (Hospitalization)
  Sender: FDA-Public Use
  Company Number: 6037507

PATIENT
  Age: 73 Year
  Sex: Female

DRUGS (18)
  1. BISOPROLOL FUMARATE [Suspect]
     Indication: DRUG USE FOR UNKNOWN INDICATION
     Dosage: 5,00 MG (2,5 MG,2 IN 1 D), ORAL
     Route: 048
  2. DIGOXIN [Suspect]
     Indication: DRUG USE FOR UNKNOWN INDICATION
     Dosage: ORAL
     Route: 048
  3. KALCIPOS-D (CHEWABLE TABLET) (COLECALCIFEROL, CALCIUM CARBONATE) [Concomitant]
  4. ENALAPRIL (ENALPPRIL) [Concomitant]
  5. PANODIL (500 MG, FILM-COATED TABLET) (PARACETAMOL) [Concomitant]
  6. SALURES (5 MG, TABLET) (BENDROFLUMETHIAZIDE) [Concomitant]
  7. WARAN (2,5 MG, TABLET) (WARFARIN SODIUM) [Concomitant]
  8. ZYLORIC (100 MG, TABLET) (ALLOPURINOL) [Concomitant]
  9. IMPUGAN (40 MG, TABLET) (FURESEMIDE) [Concomitant]
  10. PLENDIL (5 MG, PROLONGED-RELEASE TABLET) (FELODIPINE) [Concomitant]
  11. LEVAXIN (150 MICROGRAM, TABLET) (LEVOIHYROXINE SODIUM) [Concomitant]
  12. BRICANYL TURBOHALER (0,25 MG, INHALATION POWDER) (TERBUTALINE SULFATE) [Concomitant]
  13. BLOCADREN DEPOT (5 MG, EYE DROPS) (TIMOLOL MALEATE) [Concomitant]
  14. PREDNISOLONE [Concomitant]
  15. SIFROL (0,18 MG, TABLET) (PRAMIPEXOLE DIHYDROCHLORIDE) [Concomitant]
  16. TIPAROL (50 MG, EFFERVESCENT TABLET) (TRAMADOL HYDROCHLORIDE) [Concomitant]
  17. NEXIUM (40 MG, GASTRO-RESISTANT TABLET) (ESOMEPRAZOLE MAGNESIUM) [Concomitant]
  18. SYMBICORT TURBOHALER (160 MICROGRAM, INHALATION POWDER) (FORMOTEROL FU [Concomitant]

REACTIONS (6)
  - ATRIAL FIBRILLATION [None]
  - BLOOD CREATININE INCREASED [None]
  - CARDIAC ARREST [None]
  - DIZZINESS [None]
  - ELECTROCARDIOGRAM ABNORMAL [None]
  - PETIT MAL EPILEPSY [None]
